FAERS Safety Report 18564859 (Version 1)
Quarter: 2020Q4

REPORT INFORMATION
  Report Type: Spontaneous
  Country: GB (occurrence: GB)
  Receive Date: 20201201
  Receipt Date: 20201201
  Transmission Date: 20210114
  Serious: Yes (Other)
  Sender: FDA-Public Use
  Company Number: GB-PFIZER INC-2020466961

PATIENT
  Age: 64 Year
  Sex: Female

DRUGS (3)
  1. NAPROXEN. [Concomitant]
     Active Substance: NAPROXEN
     Dosage: UNK
  2. SUNITINIB MALATE. [Suspect]
     Active Substance: SUNITINIB MALATE
     Indication: METASTATIC RENAL CELL CARCINOMA
     Dosage: 37.5 MG
     Route: 048
     Dates: start: 20200430, end: 20200915
  3. CALCIUM [Concomitant]
     Active Substance: CALCIUM
     Dosage: UNK
     Route: 048

REACTIONS (4)
  - Neurological symptom [Recovered/Resolved]
  - Sensory disturbance [Unknown]
  - Cerebral microhaemorrhage [Recovered/Resolved]
  - Communication disorder [Unknown]

NARRATIVE: CASE EVENT DATE: 20200509
